FAERS Safety Report 10227631 (Version 1)
Quarter: 2014Q2

REPORT INFORMATION
  Report Type: Report from Study
  Country: CA (occurrence: None)
  Receive Date: 20140606
  Receipt Date: 20140606
  Transmission Date: 20141212
  Serious: Yes (Hospitalization)
  Sender: FDA-Public Use
  Company Number: CA-015920

PATIENT
  Age: 88 Year
  Sex: 0

DRUGS (20)
  1. FIRMAGON [Suspect]
     Indication: PROSTATE CANCER
     Route: 058
     Dates: start: 20140423
  2. CIPRALEX [Concomitant]
  3. CIPRALEX [Concomitant]
  4. FINASTERIDE [Concomitant]
  5. ACETAMINOPHEN [Concomitant]
  6. COLACE [Concomitant]
  7. DIGOXIN [Concomitant]
  8. TRAMADOL HYDROCHLORIDE [Concomitant]
  9. CALCIUM 600 WITH VITAMIN D [Concomitant]
  10. ALLOPURINOL [Concomitant]
  11. CO ETIDROCAL [Concomitant]
  12. ARICEPT [Concomitant]
  13. CONZIP [Concomitant]
  14. SENOKOT [Concomitant]
  15. VITAMIN D NOS [Concomitant]
  16. TAMSULOSIN [Concomitant]
  17. AMLODIPINE [Concomitant]
  18. FRAGMIN [Concomitant]
  19. LACTULOSE [Concomitant]
  20. SUFENTANIL CITRATE [Concomitant]

REACTIONS (2)
  - Depressed level of consciousness [None]
  - Infection [None]
